FAERS Safety Report 13331202 (Version 1)
Quarter: 2017Q1

REPORT INFORMATION
  Report Type: Spontaneous
  Country: US (occurrence: US)
  Receive Date: 20170313
  Receipt Date: 20170313
  Transmission Date: 20170428
  Serious: Yes (Hospitalization)
  Sender: FDA-Public Use
  Company Number: None

PATIENT
  Age: 56 Year
  Sex: Male
  Weight: 71.8 kg

DRUGS (1)
  1. MELOXICAM. [Suspect]
     Active Substance: MELOXICAM
     Indication: ARTHRALGIA
     Dosage: 15MG EVERYDAY PO
     Route: 048
     Dates: start: 20141006, end: 20160818

REACTIONS (4)
  - Epigastric discomfort [None]
  - Dyspepsia [None]
  - Duodenal ulcer perforation [None]
  - Abdominal pain [None]

NARRATIVE: CASE EVENT DATE: 20160817
